FAERS Safety Report 6239436-5 (Version None)
Quarter: 2009Q2

REPORT INFORMATION
  Report Type: 
  Country: None (occurrence: None)
  Receive Date: 20090622
  Receipt Date: 20090618
  Transmission Date: 20091009
  Serious: Yes (Other)
  Sender: FDA-Public Use
  Company Number: US-ASTRAZENECA-2009UW03731

PATIENT
  Age: 518 Month
  Sex: Male
  Weight: 113.9 kg

DRUGS (3)
  1. SEROQUEL [Suspect]
     Indication: BIPOLAR DISORDER
     Dosage: 100 MG, 200 MG, 300 MG
     Route: 048
     Dates: start: 20040101, end: 20080101
  2. ABILIFY [Concomitant]
     Dates: start: 20050701
  3. ZYPREXA [Concomitant]
     Dosage: 10 MG TO 20 MG
     Dates: start: 20050101

REACTIONS (9)
  - COLITIS [None]
  - EYELID PTOSIS [None]
  - FLANK PAIN [None]
  - GASTROINTESTINAL DISORDER [None]
  - NEUROPATHY PERIPHERAL [None]
  - PANCREATITIS [None]
  - PRESBYOPIA [None]
  - TYPE 2 DIABETES MELLITUS [None]
  - VITREOUS DEGENERATION [None]
